FAERS Safety Report 5316645-0 (Version None)
Quarter: 2007Q2

REPORT INFORMATION
  Report Type: 
  Country: None (occurrence: None)
  Receive Date: 20070430
  Receipt Date: 20070430
  Transmission Date: 20071010
  Serious: Yes (Other)
  Sender: FDA-Public Use
  Company Number: None

PATIENT

DRUGS (2)
  1. MOXIFLOXACIN HCL [Suspect]
     Dosage: 400 MG DAILY
     Route: 042
  2. METRONIDAZOLE [Suspect]
     Dosage: 500 MG IV Q12H
     Route: 042

REACTIONS (2)
  - PALATAL OEDEMA [None]
  - PHARYNGEAL OEDEMA [None]
